FAERS Safety Report 9238579 (Version 2)
Quarter: 2013Q2

REPORT INFORMATION
  Report Type: Spontaneous
  Country: US (occurrence: None)
  Receive Date: 20130416
  Receipt Date: 20130429
  Transmission Date: 20140414
  Serious: Yes (Hospitalization)
  Sender: FDA-Public Use
  Company Number: ACO_35422_2013

PATIENT
  Age: 55 Year
  Sex: Female
  Weight: 88.9 kg

DRUGS (11)
  1. AMPYRA [Suspect]
     Indication: GAIT DISTURBANCE
     Dates: start: 2010
  2. TUMS (CALCIUM CARBONATE, MAGNESIUM CARBONATE, MAGNESIUM TRISILICATE) [Concomitant]
  3. ANTIDEPRESSANTS [Concomitant]
  4. WELLBUTRIN (BUPROPION HYDROCHLORIDE) [Concomitant]
  5. COLACE [Concomitant]
  6. MULTIVITAMIN (VITAMINS NOS) [Concomitant]
  7. IBUPROFEN (IBUPROFEN) [Concomitant]
  8. MILK OF MAGNESIA [Concomitant]
  9. CALCIUM CARBONATE (CALCIUM CARBONATE) [Concomitant]
  10. VITAMIN D3 (COLECALCIFEROL) [Concomitant]
  11. TYSABRI (NATALIZUMAB) [Concomitant]

REACTIONS (4)
  - Lower limb fracture [None]
  - Fall [None]
  - Infection [None]
  - Ligament sprain [None]
